FAERS Safety Report 5473038-3 (Version None)
Quarter: 2007Q4

REPORT INFORMATION
  Report Type: 
  Country: None (occurrence: None)
  Receive Date: 20071001
  Receipt Date: 20070205
  Transmission Date: 20080405
  Serious: No
  Sender: FDA-Public Use
  Company Number: US-ASTRAZENECA-2007UW02415

PATIENT
  Age: 65 Year
  Sex: Female

DRUGS (6)
  1. ARIMIDEX [Suspect]
     Indication: BREAST CANCER FEMALE
     Route: 048
     Dates: start: 20040101, end: 20070101
  2. ARIMIDEX [Suspect]
     Route: 048
  3. HYDROCHLOROTHIAZIDE [Concomitant]
  4. SYNTHROID [Concomitant]
  5. FLONASE [Concomitant]
  6. MIACALCIN [Concomitant]

REACTIONS (6)
  - ARTHRALGIA [None]
  - COGNITIVE DISORDER [None]
  - DIZZINESS [None]
  - OEDEMA [None]
  - SKIN DISORDER [None]
  - WEIGHT INCREASED [None]
